FAERS Safety Report 7726079-7 (Version None)
Quarter: 2011Q3

REPORT INFORMATION
  Report Type: 
  Country: None (occurrence: None)
  Receive Date: 20110902
  Receipt Date: 20110818
  Transmission Date: 20111222
  Serious: Yes (Other)
  Sender: FDA-Public Use
  Company Number: US-WATSON-2011-13521

PATIENT
  Sex: Female
  Weight: 67 kg

DRUGS (1)
  1. FENTANYL-75 [Suspect]
     Indication: BACK PAIN
     Dosage: ONE PATCH EVERY 72 HOURS
     Route: 062
     Dates: start: 20110801

REACTIONS (9)
  - DRUG WITHDRAWAL SYNDROME [None]
  - LOSS OF CONSCIOUSNESS [None]
  - VOMITING [None]
  - DIARRHOEA [None]
  - HYPERHIDROSIS [None]
  - DRUG INEFFECTIVE [None]
  - ABDOMINAL PAIN UPPER [None]
  - OPIATES NEGATIVE [None]
  - TREMOR [None]
